FAERS Safety Report 24170867 (Version 1)
Quarter: 2024Q3

REPORT INFORMATION
  Report Type: Spontaneous
  Country: GB (occurrence: GB)
  Receive Date: 20240805
  Receipt Date: 20240805
  Transmission Date: 20241017
  Serious: Yes (Other)
  Sender: PFIZER
  Company Number: GB-MHRA-MIDB-7ddc4bba-a91f-47ea-a8f7-cbcb3909585a

PATIENT
  Age: 47 Year

DRUGS (14)
  1. LEUCOVORIN CALCIUM [Suspect]
     Active Substance: LEUCOVORIN CALCIUM
     Dosage: 100MG/10ML SOLUTION FOR INJECTION VIALS
  2. OXALIPLATIN [Suspect]
     Active Substance: OXALIPLATIN
  3. FLUOROURACIL [Suspect]
     Active Substance: FLUOROURACIL
  4. CETUXIMAB [Suspect]
     Active Substance: CETUXIMAB
     Indication: Chemotherapy
     Dosage: 100MG/20ML SOLUTION FOR INFUSION VIALS
  5. PLIAZON [PHYTOMENADIONE;UREA] [Concomitant]
  6. LANSOPRAZOLE [Concomitant]
     Active Substance: LANSOPRAZOLE
     Dosage: 30 MG
  7. LOPERAMIDE [Concomitant]
     Active Substance: LOPERAMIDE
     Dosage: 2 MG, AS NEEDED
  8. CITALOPRAM [Concomitant]
     Active Substance: CITALOPRAM\CITALOPRAM HYDROBROMIDE
  9. METOCLOPRAMIDE [Concomitant]
     Active Substance: METOCLOPRAMIDE
  10. BENZYDAMINE [Concomitant]
     Active Substance: BENZYDAMINE
  11. DIHYDROCODEINE [Concomitant]
     Active Substance: DIHYDROCODEINE
  12. BETAHISTINE [Concomitant]
     Active Substance: BETAHISTINE
  13. DEXAMETHASONE [Concomitant]
     Active Substance: DEXAMETHASONE
  14. THIAMINE [Concomitant]
     Active Substance: THIAMINE

REACTIONS (2)
  - Hypokalaemia [Recovered/Resolved]
  - Hypomagnesaemia [Recovered/Resolved]

NARRATIVE: CASE EVENT DATE: 20240325
